FAERS Safety Report 15735903 (Version 2)
Quarter: 2019Q1

REPORT INFORMATION
  Report Type: Report from Study
  Country: FR (occurrence: FR)
  Receive Date: 20181218
  Receipt Date: 20190325
  Transmission Date: 20190417
  Serious: Yes (Hospitalization, Other)
  Sender: FDA-Public Use
  Company Number: PHHY2016FR016062

PATIENT
  Age: 38 Year
  Sex: Female

DRUGS (1)
  1. GILENYA [Suspect]
     Active Substance: FINGOLIMOD HYDROCHLORIDE
     Indication: MULTIPLE SCLEROSIS
     Dosage: 0.5 MG, QD
     Route: 048
     Dates: start: 20150428

REACTIONS (7)
  - Sinusitis aspergillus [Recovered/Resolved]
  - Abscess limb [Recovered/Resolved]
  - Subcutaneous abscess [Recovered/Resolved]
  - Sinusitis [Recovered/Resolved]
  - Sinusitis aspergillus [Recovered/Resolved]
  - Subcutaneous abscess [Recovered/Resolved]
  - Infection [Recovered/Resolved]

NARRATIVE: CASE EVENT DATE: 20150515
